FAERS Safety Report 7171912-3 (Version None)
Quarter: 2010Q4

REPORT INFORMATION
  Report Type: 
  Country: None (occurrence: None)
  Receive Date: 20101217
  Receipt Date: 20100129
  Transmission Date: 20110411
  Serious: No
  Sender: FDA-Public Use
  Company Number: US-AMGEN-KDL389750

PATIENT

DRUGS (3)
  1. ENBREL [Suspect]
     Indication: RHEUMATOID ARTHRITIS
     Dosage: 50 MG, QWK
     Route: 058
  2. MINOCYCLINE HCL [Concomitant]
     Dosage: 100 MG, BID
  3. METHOTREXATE [Concomitant]
     Dosage: 17.5 MG, QWK

REACTIONS (7)
  - BACK DISORDER [None]
  - FEELING HOT [None]
  - FINGER DEFORMITY [None]
  - HEADACHE [None]
  - RHEUMATOID NODULE [None]
  - THERAPEUTIC RESPONSE DECREASED [None]
  - VOMITING [None]
